FAERS Safety Report 11891782 (Version 1)
Quarter: 2016Q1

REPORT INFORMATION
  Report Type: Spontaneous
  Country: US (occurrence: US)
  Receive Date: 20160106
  Receipt Date: 20160106
  Transmission Date: 20160526
  Serious: No
  Sender: FDA-Public Use
  Company Number: US-FRI-1000080661

PATIENT
  Age: 85 Year
  Sex: Female

DRUGS (5)
  1. SYNTHROID [Concomitant]
     Active Substance: LEVOTHYROXINE SODIUM
     Indication: HYPOTHYROIDISM
  2. BYSTOLIC [Suspect]
     Active Substance: NEBIVOLOL HYDROCHLORIDE
     Indication: BLOOD PRESSURE MEASUREMENT
     Dosage: 5 MG
     Route: 048
     Dates: start: 201508, end: 201509
  3. BYSTOLIC [Suspect]
     Active Substance: NEBIVOLOL HYDROCHLORIDE
     Dosage: 5 MG
     Route: 048
  4. VITAMINS WHOLE BODY FORMULA WITH LUTEIN [Concomitant]
     Indication: VITAMIN SUPPLEMENTATION
     Dates: start: 2001
  5. PEPCID [Concomitant]
     Active Substance: FAMOTIDINE
     Indication: OESOPHAGEAL DILATION PROCEDURE

REACTIONS (1)
  - Arthralgia [Not Recovered/Not Resolved]

NARRATIVE: CASE EVENT DATE: 201509
